FAERS Safety Report 24053664 (Version 2)
Quarter: 2024Q3

REPORT INFORMATION
  Report Type: Spontaneous
  Country: JP (occurrence: JP)
  Receive Date: 20240705
  Receipt Date: 20240905
  Transmission Date: 20241016
  Serious: Yes (Other)
  Sender: ROCHE
  Company Number: JP-ROCHE-10000008894

PATIENT
  Age: 31 Year
  Sex: Male

DRUGS (19)
  1. MYCOPHENOLATE MOFETIL [Suspect]
     Active Substance: MYCOPHENOLATE MOFETIL
     Indication: Prophylaxis against transplant rejection
     Route: 065
  2. CYTARABINE [Suspect]
     Active Substance: CYTARABINE
     Indication: Prophylaxis against transplant rejection
     Dosage: 4 G/M2
     Route: 065
  3. CYCLOPHOSPHAMIDE [Suspect]
     Active Substance: CYCLOPHOSPHAMIDE
     Indication: Prophylaxis against transplant rejection
     Route: 065
  4. CYCLOPHOSPHAMIDE [Suspect]
     Active Substance: CYCLOPHOSPHAMIDE
     Dosage: 2 G/M2
     Route: 065
  5. TACROLIMUS [Suspect]
     Active Substance: TACROLIMUS
     Indication: Prophylaxis against transplant rejection
     Route: 065
  6. FLUDARABINE [Suspect]
     Active Substance: FLUDARABINE PHOSPHATE
     Indication: Prophylaxis against transplant rejection
     Route: 065
  7. CYCLOPHOSPHAMIDE [Concomitant]
     Active Substance: CYCLOPHOSPHAMIDE
  8. DAUNORUBICIN [Concomitant]
     Active Substance: DAUNORUBICIN
  9. VINCRISTINE [Concomitant]
     Active Substance: VINCRISTINE
  10. PREDNISONE [Concomitant]
     Active Substance: PREDNISONE
  11. ASPARAGINASE [Concomitant]
     Active Substance: ASPARAGINASE
  12. GILTERITINIB [Concomitant]
     Active Substance: GILTERITINIB
     Route: 048
  13. ACYCLOVIR [Concomitant]
     Active Substance: ACYCLOVIR
     Route: 042
  14. LETERMOVIR [Concomitant]
     Active Substance: LETERMOVIR
     Route: 048
  15. GANCICLOVIR [Concomitant]
     Active Substance: GANCICLOVIR
     Route: 042
  16. VIDARABINE [Concomitant]
     Active Substance: VIDARABINE
     Route: 042
  17. RIBAVIRIN [Concomitant]
     Active Substance: RIBAVIRIN
     Route: 048
  18. DEXAMETHASONE [Concomitant]
     Active Substance: DEXAMETHASONE
     Route: 042
  19. HYDROCORTISONE [Concomitant]
     Active Substance: HYDROCORTISONE\HYDROCORTISONE ACETATE

REACTIONS (5)
  - Cystitis haemorrhagic [Unknown]
  - Adenovirus infection [Unknown]
  - Adenoviral conjunctivitis [Unknown]
  - Haemophagocytic lymphohistiocytosis [Unknown]
  - Venoocclusive liver disease [Unknown]
